FAERS Safety Report 12744573 (Version 1)
Quarter: 2016Q3

REPORT INFORMATION
  Report Type: Spontaneous
  Country: US (occurrence: US)
  Receive Date: 20160914
  Receipt Date: 20160914
  Transmission Date: 20161109
  Serious: No
  Sender: FDA-Public Use
  Company Number: US-JAZZ-2016-US-009535

PATIENT
  Sex: Female

DRUGS (53)
  1. HYDROCODONE/ACETAMINOPHEN [Concomitant]
     Active Substance: ACETAMINOPHEN\HYDROCODONE
  2. LANTUS [Concomitant]
     Active Substance: INSULIN GLARGINE
  3. SYNTHROID [Concomitant]
     Active Substance: LEVOTHYROXINE SODIUM
  4. PRIMIDONE. [Concomitant]
     Active Substance: PRIMIDONE
  5. RITALIN [Concomitant]
     Active Substance: METHYLPHENIDATE HYDROCHLORIDE
  6. FLONASE [Concomitant]
     Active Substance: FLUTICASONE PROPIONATE
  7. XYREM [Suspect]
     Active Substance: SODIUM OXYBATE
     Dosage: 3.75 G, BID
     Route: 048
     Dates: start: 201504, end: 201605
  8. HYDROCHLOROTHIAZIDE. [Concomitant]
     Active Substance: HYDROCHLOROTHIAZIDE
  9. ATENOLOL. [Concomitant]
     Active Substance: ATENOLOL
  10. CARVEDILOL. [Concomitant]
     Active Substance: CARVEDILOL
  11. XYREM [Suspect]
     Active Substance: SODIUM OXYBATE
     Indication: NARCOLEPSY
     Dosage: 2.25 G, BID
     Route: 048
     Dates: start: 201009, end: 201009
  12. XYREM [Suspect]
     Active Substance: SODIUM OXYBATE
     Dosage: 3.75 G, FIRST DOSE
     Route: 048
     Dates: start: 201605
  13. CARAFATE [Concomitant]
     Active Substance: SUCRALFATE
  14. HYDROCODONE/ACETAMINOPHEN [Concomitant]
     Active Substance: ACETAMINOPHEN\HYDROCODONE
  15. INDOMETHACIN. [Concomitant]
     Active Substance: INDOMETHACIN
  16. PROTONIX [Concomitant]
     Active Substance: PANTOPRAZOLE SODIUM
  17. GLIPIZIDE. [Concomitant]
     Active Substance: GLIPIZIDE
  18. HYDRALAZINE [Concomitant]
     Active Substance: HYDRALAZINE HYDROCHLORIDE
  19. LORTAB [Concomitant]
     Active Substance: ACETAMINOPHEN\HYDROCODONE BITARTRATE
  20. BUSPIRONE HCL [Concomitant]
     Active Substance: BUSPIRONE HYDROCHLORIDE
  21. XYREM [Suspect]
     Active Substance: SODIUM OXYBATE
     Dosage: 3 G, SECOND DOSE
     Route: 048
     Dates: start: 201605
  22. ATENOLOL. [Concomitant]
     Active Substance: ATENOLOL
  23. LISINOPRIL. [Concomitant]
     Active Substance: LISINOPRIL
  24. CLONIDINE HCL [Concomitant]
     Active Substance: CLONIDINE HYDROCHLORIDE
  25. GAVISCON [Concomitant]
     Active Substance: ALUMINUM HYDROXIDE\MAGNESIUM CARBONATE
  26. NEURONTIN [Concomitant]
     Active Substance: GABAPENTIN
  27. VITAMIN D3 [Concomitant]
     Active Substance: CHOLECALCIFEROL
  28. ATENOLOL. [Concomitant]
     Active Substance: ATENOLOL
  29. HYDROCODONE / IBUPROFEN [Concomitant]
     Active Substance: HYDROCODONE BITARTRATE\IBUPROFEN
  30. ALLOPURINOL. [Concomitant]
     Active Substance: ALLOPURINOL
  31. LEVOTHYROXINE SODIUM. [Concomitant]
     Active Substance: LEVOTHYROXINE SODIUM
  32. PRAVASTATIN SODIUM. [Concomitant]
     Active Substance: PRAVASTATIN SODIUM
  33. KLOR-CON [Concomitant]
     Active Substance: POTASSIUM CHLORIDE
  34. KLONOPIN [Concomitant]
     Active Substance: CLONAZEPAM
  35. NEXIUM [Concomitant]
     Active Substance: ESOMEPRAZOLE MAGNESIUM
  36. WELLBUTRIN [Concomitant]
     Active Substance: BUPROPION HYDROCHLORIDE
  37. VITAMIN B12 [Concomitant]
     Active Substance: CYANOCOBALAMIN
  38. XYREM [Suspect]
     Active Substance: SODIUM OXYBATE
     Indication: CATAPLEXY
     Dosage: DOSE ADJUSTMENTS
     Route: 048
  39. ALLEGRA [Concomitant]
     Active Substance: FEXOFENADINE HYDROCHLORIDE
  40. INDOMETHACIN. [Concomitant]
     Active Substance: INDOMETHACIN
  41. HYDROCHLOROTHIAZIDE. [Concomitant]
     Active Substance: HYDROCHLOROTHIAZIDE
  42. RANITIDINE. [Concomitant]
     Active Substance: RANITIDINE
  43. LISINOPRIL. [Concomitant]
     Active Substance: LISINOPRIL
  44. IRON [Concomitant]
     Active Substance: IRON
  45. AMITRIPTYLINE HCL [Concomitant]
     Active Substance: AMITRIPTYLINE
  46. CALTRATE WITH VITAMIN D [Concomitant]
     Active Substance: CALCIUM CARBONATE\CHOLECALCIFEROL
  47. LORATADINE. [Concomitant]
     Active Substance: LORATADINE
  48. VENTOLIN HFA [Concomitant]
     Active Substance: ALBUTEROL SULFATE
  49. PAXIL [Concomitant]
     Active Substance: PAROXETINE HYDROCHLORIDE
  50. CLONAZEPAM. [Concomitant]
     Active Substance: CLONAZEPAM
  51. GABAPENTIN. [Concomitant]
     Active Substance: GABAPENTIN
  52. LASIX [Concomitant]
     Active Substance: FUROSEMIDE
  53. GABAPENTIN. [Concomitant]
     Active Substance: GABAPENTIN

REACTIONS (1)
  - Fall [Unknown]
